FAERS Safety Report 17885824 (Version 1)
Quarter: 2020Q2

REPORT INFORMATION
  Report Type: Spontaneous
  Country: US (occurrence: US)
  Receive Date: 20200611
  Receipt Date: 20200611
  Transmission Date: 20200714
  Serious: Yes (Hospitalization)
  Sender: FDA-Public Use
  Company Number: US-JNJFOC-20200610257

PATIENT
  Age: 37 Year
  Sex: Female
  Weight: 148.91 kg

DRUGS (11)
  1. LOPERAMIDE [Concomitant]
     Active Substance: LOPERAMIDE
  2. METOPROLOL. [Concomitant]
     Active Substance: METOPROLOL
  3. PRAVASTATIN. [Concomitant]
     Active Substance: PRAVASTATIN
  4. PROTONIX [Concomitant]
     Active Substance: PANTOPRAZOLE SODIUM
  5. TRESIBA [Concomitant]
     Active Substance: INSULIN DEGLUDEC
  6. REMICADE [Suspect]
     Active Substance: INFLIXIMAB
     Indication: PRODUCT USED FOR UNKNOWN INDICATION
     Route: 042
  7. FOLIC ACID. [Concomitant]
     Active Substance: FOLIC ACID
  8. GLIMEPIRIDE. [Concomitant]
     Active Substance: GLIMEPIRIDE
  9. REMICADE [Suspect]
     Active Substance: INFLIXIMAB
     Route: 042
     Dates: start: 20200602
  10. LEVSIN [Concomitant]
     Active Substance: HYOSCYAMINE SULFATE
  11. TRAZODONE [Concomitant]
     Active Substance: TRAZODONE HYDROCHLORIDE

REACTIONS (5)
  - Dyspnoea [Unknown]
  - Infusion related reaction [Unknown]
  - Pneumonia [Unknown]
  - Arthralgia [Unknown]
  - Flushing [Unknown]

NARRATIVE: CASE EVENT DATE: 20200602
